FAERS Safety Report 4784468-7 (Version None)
Quarter: 2005Q3

REPORT INFORMATION
  Report Type: 
  Country: None (occurrence: None)
  Receive Date: 20050928
  Receipt Date: 20050914
  Transmission Date: 20060218
  Serious: Yes (Hospitalization)
  Sender: FDA-Public Use
  Company Number: US_0411107647

PATIENT
  Sex: Male
  Weight: 100 kg

DRUGS (11)
  1. ZYPREXA [Suspect]
     Dosage: 15 MG/1 DAY
     Dates: start: 20000907
  2. DIVALPROEX SODIUM [Concomitant]
  3. SERTRALINE HCL [Concomitant]
  4. METOPROLOL [Concomitant]
  5. TENORMIN [Concomitant]
  6. LIPITOR [Concomitant]
  7. WELLBUTRIN [Concomitant]
  8. ZESTRIL (LISINOPRIL /00894001/) [Concomitant]
  9. METFORMIN [Concomitant]
  10. GLYBURIDE [Concomitant]
  11. GABAPENTIN [Concomitant]

REACTIONS (7)
  - CONDITION AGGRAVATED [None]
  - DIABETES MELLITUS NON-INSULIN-DEPENDENT [None]
  - GLYCOSYLATED HAEMOGLOBIN INCREASED [None]
  - HYDRONEPHROSIS [None]
  - NEPHROLITHIASIS [None]
  - RENAL CYST [None]
  - RENAL FAILURE ACUTE [None]
